FAERS Safety Report 8554187-X (Version None)
Quarter: 2012Q3

REPORT INFORMATION
  Report Type: 
  Country: None (occurrence: None)
  Receive Date: 20120731
  Receipt Date: 20120726
  Transmission Date: 20120928
  Serious: Yes (Hospitalization)
  Sender: FDA-Public Use
  Company Number: FR-ELI_LILLY_AND_COMPANY-FR201207008081

PATIENT
  Sex: Male

DRUGS (4)
  1. HEPARINA CHOAY [Concomitant]
     Dosage: 20 KIU, UNK
     Dates: start: 20120630, end: 20120702
  2. ASPIRIN [Concomitant]
     Dosage: 75 MG, QD
     Route: 048
     Dates: start: 20120630, end: 20120702
  3. EFFIENT [Suspect]
     Dosage: 10 MG, QD
     Route: 048
     Dates: start: 20120701, end: 20120702
  4. EFFIENT [Suspect]
     Dosage: 60 MG, UNK
     Route: 048
     Dates: start: 20120630, end: 20120630

REACTIONS (2)
  - GASTROINTESTINAL HAEMORRHAGE [None]
  - OESOPHAGITIS [None]
